FAERS Safety Report 7307976-3 (Version None)
Quarter: 2011Q1

REPORT INFORMATION
  Report Type: 
  Country: None (occurrence: None)
  Receive Date: 20110223
  Receipt Date: 20110221
  Transmission Date: 20110831
  Serious: Yes (Death, Hospitalization)
  Sender: FDA-Public Use
  Company Number: JP-BAYER-201014607BYL

PATIENT
  Sex: Male
  Weight: 58 kg

DRUGS (6)
  1. SPIRONOLACTONE [Concomitant]
     Dosage: 50 MG (DAILY DOSE), , ORAL
     Route: 048
     Dates: start: 20100820
  2. LASIX [Concomitant]
     Dosage: 20 MG (DAILY DOSE), , ORAL
     Route: 048
     Dates: start: 20100820
  3. KERATINAMIN [Concomitant]
     Route: 061
     Dates: start: 20100819
  4. NEXAVAR [Suspect]
     Indication: HEPATIC NEOPLASM MALIGNANT
     Dosage: 400 MG (DAILY DOSE), , ORAL
     Route: 048
     Dates: start: 20100817, end: 20100819
  5. NEXAVAR [Suspect]
     Dosage: 800 MG DAILY DOSE
     Dates: start: 20100820, end: 20101019
  6. OMEPRAL [Concomitant]
     Dosage: 20 MG (DAILY DOSE), , ORAL
     Route: 048
     Dates: start: 20100816

REACTIONS (2)
  - HEPATIC NEOPLASM MALIGNANT [None]
  - OPEN WOUND [None]
